FAERS Safety Report 9913597 (Version 1)
Quarter: 2014Q1

REPORT INFORMATION
  Report Type: Spontaneous
  Country: US (occurrence: None)
  Receive Date: 20140214
  Receipt Date: 20140214
  Transmission Date: 20141002
  Serious: Yes (Death)
  Sender: FDA-Public Use
  Company Number: AUR-APL-2014-01223

PATIENT
  Age: 67 Year
  Sex: Female

DRUGS (3)
  1. CARVEDILOL (CARVEDILOL) [Suspect]
  2. SERTRALINE (SERTRALINE) [Suspect]
  3. DILTIAZEM [Suspect]
     Route: 048

REACTIONS (2)
  - Exposure via ingestion [None]
  - Toxicity to various agents [None]
